FAERS Safety Report 7628276-8 (Version None)
Quarter: 2011Q3

REPORT INFORMATION
  Report Type: 
  Country: None (occurrence: None)
  Receive Date: 20110720
  Receipt Date: 20110720
  Transmission Date: 20111222
  Serious: Yes (Other)
  Sender: FDA-Public Use
  Company Number: None

PATIENT
  Age: 36 Year
  Sex: Female
  Weight: 65.4087 kg

DRUGS (2)
  1. DROSPIRENONE AND ETHINYL ESTRADIOL [Suspect]
     Indication: ABDOMINAL PAIN
     Dosage: DAILY PO
     Route: 048
     Dates: start: 20100101, end: 20110101
  2. DROSPIRENONE AND ETHINYL ESTRADIOL [Suspect]
     Indication: MOOD SWINGS
     Dosage: DAILY PO
     Route: 048
     Dates: start: 20100101, end: 20110101

REACTIONS (4)
  - ABDOMINAL PAIN LOWER [None]
  - MENSTRUATION IRREGULAR [None]
  - MOOD SWINGS [None]
  - PRODUCT SUBSTITUTION ISSUE [None]
